FAERS Safety Report 24877762 (Version 2)
Quarter: 2025Q4

REPORT INFORMATION
  Report Type: Report from Study
  Country: US (occurrence: US)
  Receive Date: 20250123
  Receipt Date: 20251116
  Transmission Date: 20260118
  Serious: Yes (Hospitalization, Other)
  Sender: CSL BEHRING
  Company Number: US-BEH-2024182005

PATIENT
  Age: 57 Year
  Sex: Male
  Weight: 120.18 kg

DRUGS (2)
  1. ZEMAIRA [Suspect]
     Active Substance: .ALPHA.1-PROTEINASE INHIBITOR HUMAN
     Indication: Alpha-1 antitrypsin deficiency
     Route: 065
  2. ZEMAIRA [Suspect]
     Active Substance: .ALPHA.1-PROTEINASE INHIBITOR HUMAN
     Dosage: UNK, QW
     Route: 042

REACTIONS (12)
  - Influenza [Recovering/Resolving]
  - Pneumonia influenzal [Recovering/Resolving]
  - Pneumonia [Unknown]
  - Dyspnoea [Recovered/Resolved]
  - Cough [Recovered/Resolved]
  - Fatigue [Recovered/Resolved]
  - Dyspnoea [Unknown]
  - Sputum increased [Unknown]
  - Dyspnoea [Unknown]
  - Cough [Unknown]
  - Sputum discoloured [Unknown]
  - Headache [Unknown]

NARRATIVE: CASE EVENT DATE: 20240909
